FAERS Safety Report 5217994-7 (Version None)
Quarter: 2007Q1

REPORT INFORMATION
  Report Type: 
  Country: None (occurrence: None)
  Receive Date: 20061130
  Receipt Date: 20060815
  Transmission Date: 20070707
  Serious: Yes (Hospitalization)
  Sender: FDA-Public Use
  Company Number: US200602005663

PATIENT
  Age: 50 Year
  Sex: Male
  Weight: 92.5 kg

DRUGS (4)
  1. ZYPREXA [Suspect]
     Indication: DEPRESSION
     Dates: start: 19970101
  2. RISPERIDAL /SWE/(RISPERIDONE) [Concomitant]
  3. EFFEXOR [Concomitant]
  4. LEXAPRO /USA/(ESCITALOPRAM) [Concomitant]

REACTIONS (5)
  - BLOOD CHOLESTEROL INCREASED [None]
  - BLOOD TRIGLYCERIDES INCREASED [None]
  - CHEST PAIN [None]
  - DIABETES MELLITUS NON-INSULIN-DEPENDENT [None]
  - OBESITY [None]
